FAERS Safety Report 7419052-X (Version None)
Quarter: 2011Q2

REPORT INFORMATION
  Report Type: 
  Country: None (occurrence: None)
  Receive Date: 20110415
  Receipt Date: 20110405
  Transmission Date: 20111010
  Serious: Yes (Other)
  Sender: FDA-Public Use
  Company Number: PHHY2011FR29471

PATIENT
  Sex: Female
  Weight: 50 kg

DRUGS (2)
  1. GLEEVEC [Suspect]
     Indication: DERMATOFIBROSARCOMA
     Dosage: 600 MG, DAILY
     Route: 048
     Dates: start: 20060101, end: 20100201
  2. GLEEVEC [Suspect]
     Dosage: 400 MG, DAILY
     Route: 048
     Dates: start: 20100201, end: 20110210

REACTIONS (4)
  - TRANSAMINASES INCREASED [None]
  - HEPATIC FIBROSIS [None]
  - HEPATIC FAILURE [None]
  - HEPATITIS B [None]
